FAERS Safety Report 17538213 (Version 1)
Quarter: 2020Q1

REPORT INFORMATION
  Report Type: Spontaneous
  Country: US (occurrence: US)
  Receive Date: 20200313
  Receipt Date: 20200313
  Transmission Date: 20200409
  Serious: No
  Sender: FDA-Public Use
  Company Number: NVSC2020US071089

PATIENT
  Age: 55 Year
  Sex: Male

DRUGS (1)
  1. TRIAMCINOLONE [Suspect]
     Active Substance: TRIAMCINOLONE
     Indication: RASH
     Dosage: UNK
     Route: 065

REACTIONS (4)
  - Atrophy [Unknown]
  - Skin wrinkling [Unknown]
  - Erythema [Unknown]
  - Skin exfoliation [Unknown]
